FAERS Safety Report 5352618-X (Version None)
Quarter: 2007Q2

REPORT INFORMATION
  Report Type: 
  Country: None (occurrence: None)
  Receive Date: 20070518
  Receipt Date: 20060717
  Transmission Date: 20071010
  Serious: Yes (Death, Hospitalization)
  Sender: FDA-Public Use
  Company Number: Q06-034

PATIENT
  Sex: Male
  Weight: 61 kg

DRUGS (18)
  1. SAMARIUM (SM 153) [Suspect]
     Indication: METASTASES TO BONE
     Dosage: 1 MCI/KG
     Dates: start: 20060323
  2. SAMARIUM (SM 153) [Suspect]
     Indication: PROSTATE CANCER
     Dosage: 1 MCI/KG
     Dates: start: 20060323
  3. SAMARIUM (SM 153) [Suspect]
     Indication: METASTASES TO BONE
     Dosage: 1 MCI/KG
     Dates: start: 20060615
  4. SAMARIUM (SM 153) [Suspect]
     Indication: PROSTATE CANCER
     Dosage: 1 MCI/KG
     Dates: start: 20060615
  5. ZOMETA [Suspect]
     Indication: METASTASES TO BONE
     Dosage: 4 MG EVERY 4 WEEKS
     Dates: start: 20060615
  6. ZOMETA [Suspect]
     Indication: PROSTATE CANCER
     Dosage: 4 MG EVERY 4 WEEKS
     Dates: start: 20060615
  7. ZOTREL [Concomitant]
  8. HYDROCHLOROTHIAZIDE [Concomitant]
  9. CELEBREX [Concomitant]
  10. RITALIN [Concomitant]
  11. PRAVACID [Concomitant]
  12. ZOFRAN [Concomitant]
  13. MSIR [Concomitant]
  14. COLACE [Concomitant]
  15. OSCAL [Concomitant]
  16. DURAGESIC-100 [Concomitant]
  17. LUPRON [Concomitant]
  18. CYTOXAN [Concomitant]

REACTIONS (1)
  - HEPATORENAL FAILURE [None]
